APPROVED DRUG PRODUCT: LORATADINE
Active Ingredient: LORATADINE
Strength: 10MG
Dosage Form/Route: TABLET, CHEWABLE;ORAL
Application: A210088 | Product #002
Applicant: SUN PHARMACEUTICAL INDUSTRIES LTD
Approved: Apr 25, 2025 | RLD: No | RS: No | Type: OTC